FAERS Safety Report 6648755-X (Version None)
Quarter: 2010Q1

REPORT INFORMATION
  Report Type: 
  Country: None (occurrence: None)
  Receive Date: 20100324
  Receipt Date: 20100317
  Transmission Date: 20100710
  Serious: Yes (Other)
  Sender: FDA-Public Use
  Company Number: JP-PFIZER INC-2010033349

PATIENT
  Age: 17 Year
  Sex: Female

DRUGS (1)
  1. ATARAX [Suspect]
     Dosage: 25 MG, 3X/DAY

REACTIONS (1)
  - PERSONALITY CHANGE [None]
